FAERS Safety Report 8371258-1 (Version None)
Quarter: 2012Q2

REPORT INFORMATION
  Report Type: 
  Country: None (occurrence: None)
  Receive Date: 20120518
  Receipt Date: 20120517
  Transmission Date: 20120825
  Serious: Yes (Hospitalization, Other)
  Sender: FDA-Public Use
  Company Number: US-PFIZER INC-2012120613

PATIENT
  Sex: Female
  Weight: 45.351 kg

DRUGS (5)
  1. LITHOBID [Concomitant]
     Indication: BIPOLAR DISORDER
     Dosage: UNK
  2. HYDROXYZINE [Concomitant]
     Indication: PRURITUS
     Dosage: UNK
  3. GEODON [Suspect]
     Indication: BIPOLAR DISORDER
     Dosage: UNK
     Route: 048
  4. GEODON [Suspect]
     Dosage: 40 MG, 1X/DAY
     Route: 048
     Dates: start: 20120510, end: 20120515
  5. ATIVAN [Concomitant]
     Indication: AGITATION
     Dosage: UNK

REACTIONS (3)
  - FEELING ABNORMAL [None]
  - GASTRIC DISORDER [None]
  - BIPOLAR DISORDER [None]
